FAERS Safety Report 6717909-6 (Version None)
Quarter: 2010Q2

REPORT INFORMATION
  Report Type: 
  Country: None (occurrence: None)
  Receive Date: 20100510
  Receipt Date: 20091014
  Transmission Date: 20101027
  Serious: Yes (Hospitalization)
  Sender: FDA-Public Use
  Company Number: PHEH2009US14257

PATIENT
  Sex: Female

DRUGS (3)
  1. SANDOSTATIN LAR [Suspect]
     Dosage: 2 ^SHOTS^, QMO
     Dates: start: 20041201
  2. XELODA [Suspect]
     Dosage: UNK
     Route: 048
  3. TEMODAR [Suspect]
     Dosage: UNK
     Route: 048

REACTIONS (3)
  - INJECTION SITE PAIN [None]
  - INJECTION SITE SWELLING [None]
  - PLATELET COUNT DECREASED [None]
